FAERS Safety Report 5563576-7 (Version None)
Quarter: 2007Q4

REPORT INFORMATION
  Report Type: 
  Country: None (occurrence: None)
  Receive Date: 20071217
  Receipt Date: 20070814
  Transmission Date: 20080405
  Serious: No
  Sender: FDA-Public Use
  Company Number: US-ASTRAZENECA-2007UW15862

PATIENT
  Age: 71 Year
  Sex: Female
  Weight: 69.4 kg

DRUGS (7)
  1. CRESTOR [Suspect]
     Dosage: QOD TO QD
     Route: 048
  2. TOPROL-XL [Suspect]
     Route: 048
  3. CYTOMIL [Concomitant]
  4. TEKTURNA [Concomitant]
  5. GLUCOPHAGE [Concomitant]
  6. CALCIUM [Concomitant]
  7. MULTI-B [Concomitant]

REACTIONS (1)
  - MYALGIA [None]
